FAERS Safety Report 4349963-3 (Version None)
Quarter: 2004Q2

REPORT INFORMATION
  Report Type: 
  Country: None (occurrence: None)
  Receive Date: 20040428
  Receipt Date: 20040428
  Transmission Date: 20050107
  Serious: Yes (Hospitalization)
  Sender: FDA-Public Use
  Company Number: None

PATIENT
  Age: 73 Year
  Sex: Female

DRUGS (3)
  1. AZITHROMYCIN [Suspect]
     Indication: PNEUMONIA
     Dosage: 500 MG PO DAILY
     Route: 048
     Dates: start: 20031210, end: 20031219
  2. DEPAKOTE [Concomitant]
  3. SEROQUEL [Concomitant]

REACTIONS (2)
  - CLOSTRIDIAL INFECTION [None]
  - DIARRHOEA [None]
